FAERS Safety Report 16688814 (Version 1)
Quarter: 2019Q3

REPORT INFORMATION
  Report Type: Report from Study
  Country: JP (occurrence: JP)
  Receive Date: 20190809
  Receipt Date: 20190809
  Transmission Date: 20191004
  Serious: Yes (Death)
  Sender: FDA-Public Use
  Company Number: JP-PFIZER INC-2019343868

PATIENT

DRUGS (3)
  1. OXALIPLATIN. [Suspect]
     Active Substance: OXALIPLATIN
     Indication: ADENOCARCINOMA GASTRIC
     Dosage: 100 MG/M2, CYCLIC (ON DAY 1)
     Route: 042
  2. RAMUCIRUMAB [Suspect]
     Active Substance: RAMUCIRUMAB
     Indication: ADENOCARCINOMA GASTRIC
     Dosage: 8MG/KG, ON DAYS 1 AND 8 OF A 21-DAY CYCLE
     Route: 042
  3. TS-1 [Suspect]
     Active Substance: GIMERACIL\OTERACIL\TEGAFUR
     Indication: ADENOCARCINOMA GASTRIC
     Dosage: 80 TO 120MG, TWICE DAILY ON DAYS 1 TO 14
     Route: 048

REACTIONS (1)
  - Death [Fatal]
